FAERS Safety Report 13209115 (Version 1)
Quarter: 2017Q1

REPORT INFORMATION
  Report Type: Report from Study
  Country: ES (occurrence: ES)
  Receive Date: 20170209
  Receipt Date: 20170209
  Transmission Date: 20170428
  Serious: Yes (Other)
  Sender: FDA-Public Use
  Company Number: ES-GILEAD-2016-0251277

PATIENT
  Age: 39 Year
  Sex: Female
  Weight: 69.6 kg

DRUGS (4)
  1. EMTRICITABINE/TENOFOVIR DISOPROXIL FUMARATE [Suspect]
     Active Substance: EMTRICITABINE\TENOFOVIR DISOPROXIL FUMARATE
     Dosage: UNK
     Route: 065
     Dates: start: 20161223, end: 20170117
  2. RALTEGRAVIR. [Concomitant]
     Active Substance: RALTEGRAVIR
  3. EMTRICITABINE/TENOFOVIR DISOPROXIL FUMARATE [Suspect]
     Active Substance: EMTRICITABINE\TENOFOVIR DISOPROXIL FUMARATE
     Indication: HIV INFECTION
     Dosage: UNK
     Route: 048
     Dates: end: 20161118
  4. NEVIRAPINE. [Concomitant]
     Active Substance: NEVIRAPINE

REACTIONS (4)
  - Ectopic pregnancy [Recovered/Resolved]
  - Proteinuria [Not Recovered/Not Resolved]
  - Abortion [Recovered/Resolved]
  - Maternal exposure during pregnancy [Recovered/Resolved]

NARRATIVE: CASE EVENT DATE: 20161118
